FAERS Safety Report 13744989 (Version 1)
Quarter: 2017Q3

REPORT INFORMATION
  Report Type: Spontaneous
  Country: US (occurrence: US)
  Receive Date: 20170711
  Receipt Date: 20170711
  Transmission Date: 20171127
  Serious: Yes (Life-Threatening, Hospitalization, Disabling, Other)
  Sender: FDA-Public Use
  Company Number: None

PATIENT
  Age: 54 Year
  Sex: Female
  Weight: 67.5 kg

DRUGS (1)
  1. CLONAZAPAM [Suspect]
     Active Substance: CLONAZEPAM

REACTIONS (4)
  - Pain [None]
  - Anxiety [None]
  - Suicide attempt [None]
  - Migraine [None]

NARRATIVE: CASE EVENT DATE: 20140613
